FAERS Safety Report 8609518-9 (Version None)
Quarter: 2012Q3

REPORT INFORMATION
  Report Type: 
  Country: None (occurrence: None)
  Receive Date: 20120821
  Receipt Date: 20120815
  Transmission Date: 20120928
  Serious: Yes (Other)
  Sender: FDA-Public Use
  Company Number: US-PFIZER INC-2012201316

PATIENT
  Age: 19 Year
  Sex: Female
  Weight: 90.703 kg

DRUGS (2)
  1. EFFEXOR [Suspect]
     Indication: DEPRESSION
     Dosage: UNK
     Dates: end: 20110101
  2. CHANTIX [Suspect]
     Indication: SMOKING CESSATION THERAPY
     Dosage: 0.5 MG, DAILY
     Route: 048
     Dates: start: 20090101, end: 20090101

REACTIONS (9)
  - HYPERTENSION [None]
  - NIGHTMARE [None]
  - PERSONALITY CHANGE [None]
  - EROSIVE OESOPHAGITIS [None]
  - GASTRIC DISORDER [None]
  - SUICIDAL IDEATION [None]
  - MORBID THOUGHTS [None]
  - DEPRESSION [None]
  - SOCIAL AVOIDANT BEHAVIOUR [None]
